FAERS Safety Report 21020537 (Version 1)
Quarter: 2022Q2

REPORT INFORMATION
  Report Type: Spontaneous
  Country: US (occurrence: None)
  Receive Date: 20220629
  Receipt Date: 20220629
  Transmission Date: 20220721
  Serious: No
  Sender: FDA-Public Use
  Company Number: 2022A208115

PATIENT
  Age: 864 Month
  Sex: Female
  Weight: 86.2 kg

DRUGS (1)
  1. SYMBICORT [Suspect]
     Active Substance: BUDESONIDE\FORMOTEROL FUMARATE DIHYDRATE
     Indication: Chronic obstructive pulmonary disease
     Dosage: 80/4.5 MCG, 2 INHALATIONS TWICE A DAY
     Route: 055
     Dates: start: 202106

REACTIONS (4)
  - Dysphonia [Not Recovered/Not Resolved]
  - Body height decreased [Unknown]
  - Product dose omission issue [Unknown]
  - Device delivery system issue [Unknown]

NARRATIVE: CASE EVENT DATE: 20220301
